FAERS Safety Report 26114457 (Version 1)
Quarter: 2025Q4

REPORT INFORMATION
  Report Type: Other
  Country: US (occurrence: US)
  Receive Date: 20251202
  Receipt Date: 20251202
  Transmission Date: 20260118
  Serious: Yes (Other)
  Sender: HLS THERAPEUTICS
  Company Number: US-HLS-202500408

PATIENT
  Sex: Female

DRUGS (3)
  1. CLOZAPINE [Suspect]
     Active Substance: CLOZAPINE
     Indication: Schizophrenia
     Route: 048
  2. LORAZEPAM [Concomitant]
     Active Substance: LORAZEPAM
     Indication: Product used for unknown indication
     Route: 065
  3. MAGNESIUM OXIDE [Concomitant]
     Active Substance: MAGNESIUM OXIDE
     Indication: Product used for unknown indication
     Route: 065

REACTIONS (3)
  - Exposure during pregnancy [Unknown]
  - Gestational diabetes [Recovered/Resolved]
  - Weight increased [Unknown]
